FAERS Safety Report 5350828-9 (Version None)
Quarter: 2007Q2

REPORT INFORMATION
  Report Type: 
  Country: None (occurrence: None)
  Receive Date: 20070608
  Receipt Date: 20070531
  Transmission Date: 20071010
  Serious: Yes (Death, Hospitalization, Other)
  Sender: FDA-Public Use
  Company Number: BR-AVENTIS-200714969GDDC

PATIENT
  Age: 65 Year
  Sex: Male

DRUGS (3)
  1. LANTUS [Suspect]
  2. AUTOPEN INSULIN INJECTION PEN [Suspect]
  3. PREDNISONE TAB [Concomitant]
     Dosage: DOSE: UNK

REACTIONS (2)
  - BLOOD GLUCOSE FLUCTUATION [None]
  - DEATH [None]
